FAERS Safety Report 6021430-0 (Version None)
Quarter: 2008Q4

REPORT INFORMATION
  Report Type: 
  Country: None (occurrence: None)
  Receive Date: 20081229
  Receipt Date: 20081218
  Transmission Date: 20090506
  Serious: Yes (Death, Hospitalization)
  Sender: FDA-Public Use
  Company Number: US-JNJFOC-20081205325

PATIENT
  Age: 48 Year
  Sex: Female

DRUGS (1)
  1. ACETAMINOPHEN/ DIPHENHYDRAMINE [Suspect]
     Indication: SUICIDE ATTEMPT
     Dosage: 75 G OF ACETAMINOPHEN AND 3750 MG OF DIPHENHYDRAMINE IN THE COMBINATION PRODUCT
     Route: 048

REACTIONS (7)
  - ANTICHOLINERGIC SYNDROME [None]
  - BRONCHOPNEUMONIA [None]
  - CONVULSION [None]
  - ELECTROCARDIOGRAM QRS COMPLEX PROLONGED [None]
  - ENCEPHALOPATHY [None]
  - HEPATIC NECROSIS [None]
  - INTENTIONAL OVERDOSE [None]
